FAERS Safety Report 4335328-7 (Version None)
Quarter: 2004Q2

REPORT INFORMATION
  Report Type: 
  Country: None (occurrence: None)
  Receive Date: 20040408
  Receipt Date: 20040408
  Transmission Date: 20050107
  Serious: Yes (Other)
  Sender: FDA-Public Use
  Company Number: None

PATIENT
  Sex: Male

DRUGS (8)
  1. VORICONOZOLE [Suspect]
     Indication: FEBRILE NEUTROPENIA
     Dosage: 200 MG PO BID
     Route: 048
     Dates: start: 20040111, end: 20040119
  2. ACYCLOVIR [Concomitant]
  3. AMLODIPINE [Concomitant]
  4. CEFEPIME [Concomitant]
  5. CYCLOSPORINE [Concomitant]
  6. FILGRASTIM [Concomitant]
  7. METHOTREXATE [Concomitant]
  8. ACETAMINOPHEN [Concomitant]

REACTIONS (3)
  - ALANINE AMINOTRANSFERASE INCREASED [None]
  - ASPARTATE AMINOTRANSFERASE INCREASED [None]
  - HEPATIC ENZYME INCREASED [None]
